FAERS Safety Report 4749799-5 (Version None)
Quarter: 2005Q3

REPORT INFORMATION
  Report Type: 
  Country: None (occurrence: None)
  Receive Date: 20050822
  Receipt Date: 20050429
  Transmission Date: 20060218
  Serious: Yes (Congenital Anomaly, Other)
  Sender: FDA-Public Use
  Company Number: GB-ABBOTT-05P-167-0298951-00

PATIENT

DRUGS (5)
  1. NORVIR [Suspect]
     Indication: DRUG EXPOSURE DURING PREGNANCY
  2. PROTHIADEN [Suspect]
     Indication: DRUG EXPOSURE DURING PREGNANCY
  3. ATAZANIR [Concomitant]
     Indication: DRUG EXPOSURE DURING PREGNANCY
  4. TENOFOVIR [Concomitant]
     Indication: DRUG EXPOSURE DURING PREGNANCY
  5. EMTRICITABINE [Concomitant]
     Indication: DRUG EXPOSURE DURING PREGNANCY

REACTIONS (1)
  - PLEURAL EFFUSION [None]
